FAERS Safety Report 16552412 (Version 2)
Quarter: 2019Q3

REPORT INFORMATION
  Report Type: Spontaneous
  Country: US (occurrence: US)
  Receive Date: 20190710
  Receipt Date: 20190726
  Transmission Date: 20191004
  Serious: No
  Sender: FDA-Public Use
  Company Number: US-APOTEX-2019AP016792

PATIENT
  Sex: Female

DRUGS (4)
  1. AZELASTINE. [Suspect]
     Active Substance: AZELASTINE HYDROCHLORIDE
     Indication: PRODUCT USED FOR UNKNOWN INDICATION
     Dosage: UNK, BID 1 SPRAY IN EACH NOSTRIL TWICE A DAY.
     Route: 045
  2. ZYRTEC [Concomitant]
     Active Substance: CETIRIZINE HYDROCHLORIDE
     Indication: PRODUCT USED FOR UNKNOWN INDICATION
     Dosage: UNK
     Route: 065
  3. FLUTICASONE. [Suspect]
     Active Substance: FLUTICASONE
     Indication: UPPER-AIRWAY COUGH SYNDROME
     Dosage: UNK, BID 2 SPRAYS PER NOSTRIL TWICE A DAY
     Route: 045
     Dates: end: 20190609
  4. BABY ASPIRIN [Concomitant]
     Active Substance: ASPIRIN
     Indication: HEART RATE IRREGULAR
     Dosage: UNK
     Route: 065
     Dates: end: 20190609

REACTIONS (9)
  - Productive cough [Recovering/Resolving]
  - Drug ineffective [Unknown]
  - Rhinorrhoea [Recovering/Resolving]
  - Dyspnoea [Not Recovered/Not Resolved]
  - Oropharyngeal pain [Recovering/Resolving]
  - Condition aggravated [Recovering/Resolving]
  - Cough [Not Recovered/Not Resolved]
  - Insomnia [Unknown]
  - Nausea [Unknown]
